FAERS Safety Report 13756510 (Version 4)
Quarter: 2017Q4

REPORT INFORMATION
  Report Type: Report from Study
  Country: US (occurrence: BR)
  Receive Date: 20170714
  Receipt Date: 20171106
  Transmission Date: 20180320
  Serious: Yes (Death, Hospitalization, Other)
  Sender: FDA-Public Use
  Company Number: US-SUNOVION-2017SUN002983

PATIENT
  Age: 67 Year
  Sex: Male

DRUGS (24)
  1. PREDNISONE. [Concomitant]
     Active Substance: PREDNISONE
  2. AMIODARONE [Concomitant]
     Active Substance: AMIODARONE
     Dosage: 200 MG, UNK
  3. ALDACTONE [Concomitant]
     Active Substance: SPIRONOLACTONE
     Dosage: 25 MG, UNK
  4. CLAVULIN [Concomitant]
     Active Substance: AMOXICILLIN\CLAVULANIC ACID
     Dosage: 500 UNK, UNK
  5. COBAVITAL [Concomitant]
     Active Substance: COBAMAMIDE\CYPROHEPTADINE HYDROCHLORIDE
     Dosage: 4 MG, UNK
  6. INFLUENZA VACCINE [Concomitant]
     Active Substance: INFLUENZA VIRUS VACCINE
  7. SPIRIVA [Concomitant]
     Active Substance: TIOTROPIUM BROMIDE MONOHYDRATE
  8. DUOFLAM [Concomitant]
     Active Substance: BETAMETHASONE DIPROPIONATE\BETAMETHASONE SODIUM PHOSPHATE
  9. PRELONE [Concomitant]
     Active Substance: PREDNISOLONE
     Dosage: 20 MG, UNK
  10. INDACATEROL AND GLYCOPYRROLATE [Suspect]
     Active Substance: GLYCOPYRROLATE\INDACATEROL MALEATE
     Indication: PRODUCT USED FOR UNKNOWN INDICATION
     Dosage: 0.11/0.05 MG
     Route: 065
  11. DUOVENT [Concomitant]
     Active Substance: FENOTEROL HYDROBROMIDE
  12. COMPLEX B [Concomitant]
     Active Substance: CALCIUM PANTOTHENATE\CYANOCOBALAMIN\NIACINAMIDE\PYRIDOXINE HYDROCHLORIDE\RIBOFLAVIN\THIAMINE MONONITRATE
     Dosage: UNK
  13. FLUIMUCIL [Concomitant]
     Active Substance: ACETYLCYSTEINE
     Dosage: 200 MG, UNK
  14. HP [Concomitant]
     Dosage: UNK
  15. DIVELOL [Concomitant]
     Dosage: 6.25 UNK, UNK
  16. FUROSEMIDE. [Concomitant]
     Active Substance: FUROSEMIDE
     Dosage: 40 MG, UNK
  17. DEPO-MEDROL [Concomitant]
     Active Substance: METHYLPREDNISOLONE ACETATE
  18. DUOMO HP [Concomitant]
  19. PURAN [Concomitant]
     Active Substance: LEVOTHYROXINE SODIUM
  20. FLUIR [Concomitant]
     Active Substance: FORMOTEROL FUMARATE
     Dosage: 12 ?G, UNK
  21. MIRTAZAPINE. [Concomitant]
     Active Substance: MIRTAZAPINE
     Dosage: UNK
  22. MODURETIC 5-50 [Concomitant]
     Active Substance: AMILORIDE HYDROCHLORIDE\HYDROCHLOROTHIAZIDE
     Dosage: 25 MG, UNK
  23. OMEPRAZOLE. [Concomitant]
     Active Substance: OMEPRAZOLE
     Dosage: UNK
  24. BAMIFIX [Concomitant]
     Active Substance: BAMIFYLLINE HYDROCHLORIDE
     Dosage: 300 MG, UNK

REACTIONS (30)
  - Cerebrovascular accident [Unknown]
  - Cardio-respiratory arrest [Fatal]
  - Brain hypoxia [Unknown]
  - Hypothyroidism [Unknown]
  - Supraventricular extrasystoles [Unknown]
  - Blood thyroid stimulating hormone increased [Unknown]
  - Pulmonary artery dilatation [Unknown]
  - Depression [Unknown]
  - Productive cough [Unknown]
  - Malaise [Unknown]
  - Chest pain [Unknown]
  - Oedema peripheral [Unknown]
  - Dyspnoea [Recovering/Resolving]
  - Pulmonary hypertension [Unknown]
  - Forced expiratory volume decreased [Unknown]
  - Aortic dilatation [Unknown]
  - Crepitations [Unknown]
  - Pyrexia [Unknown]
  - Viral upper respiratory tract infection [Not Recovered/Not Resolved]
  - Cardiomyopathy [Unknown]
  - Pulmonary fibrosis [Unknown]
  - Arterial insufficiency [Unknown]
  - Respiration abnormal [Unknown]
  - Dyspnoea exertional [Unknown]
  - Emphysema [Fatal]
  - Concomitant disease aggravated [Unknown]
  - Cough [Unknown]
  - Forced vital capacity decreased [Unknown]
  - Anxiety [Unknown]
  - Pruritus [Unknown]

NARRATIVE: CASE EVENT DATE: 20170203
